FAERS Safety Report 8915867 (Version 1)
Quarter: 2012Q4

REPORT INFORMATION
  Report Type: 
  Country: SE (occurrence: SE)
  Receive Date: 20121119
  Receipt Date: 20121119
  Transmission Date: 20130627
  Serious: Yes (Hospitalization)
  Sender: FDA-Public Use
  Company Number: SE-PFIZER INC-2012284972

PATIENT
  Age: 67 Year
  Sex: Male
  Weight: 94 kg

DRUGS (10)
  1. GENOTROPIN [Suspect]
     Indication: GROWTH HORMONE DEFICIENCY
     Dosage: 0.2 mg, 1x/day,7 injections/week
     Route: 058
     Dates: start: 19981215
  2. DESMOPRESSIN [Concomitant]
     Indication: ADH DECREASED
     Dosage: UNK
     Dates: start: 19900601
  3. LEVOTHYROXINE [Concomitant]
     Indication: TSH DECREASED
     Dosage: UNK
     Dates: start: 19900601
  4. LEVOTHYROXINE [Concomitant]
     Indication: PRIMARY HYPOTHYROIDISM
  5. LASIX RETARD [Concomitant]
     Indication: EDEMA
     Dosage: UNK
     Dates: start: 19940622
  6. HYDROCORTISONE [Concomitant]
     Indication: ACTH DECREASED
     Dosage: UNK
     Dates: start: 20030625
  7. LAMOTRIGINE [Concomitant]
     Indication: CONVULSIONS
     Dosage: UNK
     Dates: start: 20041026
  8. LAMOTRIGINE [Concomitant]
     Indication: EPILEPSY
  9. SIMVASTATIN [Concomitant]
     Dosage: UNK
     Dates: start: 2007
  10. COZAAR [Concomitant]
     Indication: HYPERTENSION
     Dosage: UNK
     Dates: start: 20090101

REACTIONS (1)
  - Nervous system disorder [Unknown]
